FAERS Safety Report 10696166 (Version 3)
Quarter: 2015Q3

REPORT INFORMATION
  Report Type: Spontaneous
  Country: US (occurrence: US)
  Receive Date: 20150107
  Receipt Date: 20150820
  Transmission Date: 20151125
  Serious: Yes (Hospitalization)
  Sender: FDA-Public Use
  Company Number: US-BAYER-2015-001655

PATIENT
  Age: 25 Year
  Sex: Female
  Weight: 61.22 kg

DRUGS (6)
  1. MIRENA [Suspect]
     Active Substance: LEVONORGESTREL
     Indication: CONTRACEPTION
     Dosage: 20 MCG/24HR, CONT
     Route: 015
     Dates: start: 20120424, end: 20120820
  2. PRENATAL VITAMINS [Concomitant]
     Active Substance: VITAMINS
     Dosage: UNK
     Dates: start: 2011, end: 2013
  3. CYCLOBENZAPRINE [Concomitant]
     Active Substance: CYCLOBENZAPRINE
  4. NICOTINE. [Concomitant]
     Active Substance: NICOTINE
  5. LODINE [Concomitant]
     Active Substance: ETODOLAC
  6. METHADONE [Concomitant]
     Active Substance: METHADONE HYDROCHLORIDE
     Dosage: UNK
     Dates: start: 201202

REACTIONS (6)
  - Depression [None]
  - Uterine perforation [None]
  - Emotional distress [None]
  - Anxiety [None]
  - Injury [None]
  - Pain [None]

NARRATIVE: CASE EVENT DATE: 201204
